FAERS Safety Report 25374014 (Version 1)
Quarter: 2025Q2

REPORT INFORMATION
  Report Type: Spontaneous
  Country: CN (occurrence: CN)
  Receive Date: 20250529
  Receipt Date: 20250529
  Transmission Date: 20250716
  Serious: Yes (Life-Threatening, Hospitalization, Disabling)
  Sender: OTSUKA
  Company Number: CN-MMM-Otsuka-Y23QBXPO

PATIENT
  Age: 56 Year
  Sex: Female
  Weight: 88 kg

DRUGS (1)
  1. TOLVAPTAN [Suspect]
     Active Substance: TOLVAPTAN
     Indication: Hypernatraemia
     Dosage: 15 MG, QD
     Route: 048
     Dates: start: 20250512, end: 20250519

REACTIONS (4)
  - Depressed level of consciousness [Recovering/Resolving]
  - Coma [Recovering/Resolving]
  - Vomiting [Recovering/Resolving]
  - Hypernatraemia [Recovering/Resolving]

NARRATIVE: CASE EVENT DATE: 20250519
